FAERS Safety Report 12233079 (Version 2)
Quarter: 2016Q2

REPORT INFORMATION
  Report Type: Report from Study
  Country: US (occurrence: US)
  Receive Date: 20160403
  Receipt Date: 20160524
  Transmission Date: 20160815
  Serious: Yes (Other)
  Sender: FDA-Public Use
  Company Number: US-UCBSA-2016011634

PATIENT
  Sex: Female
  Weight: 75 kg

DRUGS (13)
  1. OMEPRAZOLE. [Concomitant]
     Active Substance: OMEPRAZOLE
     Indication: GASTRIC DISORDER
     Dosage: UNK, ONCE DAILY (QD)
     Route: 048
     Dates: start: 201511
  2. NIACIN. [Concomitant]
     Active Substance: NIACIN
     Indication: SKIN DISORDER
     Dosage: 500 MG, 2X/DAY (BID)
     Route: 048
     Dates: start: 201510
  3. VITAMIN D [Concomitant]
     Active Substance: CHOLECALCIFEROL
     Indication: SKIN DISORDER
     Dosage: 1000 MG, ONCE DAILY (QD)
     Route: 048
     Dates: start: 201510
  4. VITAMIN C [Concomitant]
     Active Substance: ASCORBIC ACID
     Indication: SKIN DISORDER
     Dosage: 500 MG, ONCE DAILY (QD)
     Route: 048
     Dates: start: 201510
  5. ROTIGOTINE [Suspect]
     Active Substance: ROTIGOTINE
     Dosage: DOSE INCREASED (4 MG)
  6. VIBRA-TABS [Concomitant]
     Active Substance: DOXYCYCLINE HYCLATE
     Indication: PEMPHIGOID
     Dosage: 100 MG, 2X/DAY (BID)
     Route: 048
     Dates: start: 201512
  7. ROTIGOTINE [Suspect]
     Active Substance: ROTIGOTINE
     Indication: RESTLESS LEGS SYNDROME
     Dosage: 2 MG, ONCE DAILY (QD)
     Route: 062
  8. NOVOLOG [Concomitant]
     Active Substance: INSULIN ASPART
     Indication: BLOOD GLUCOSE INCREASED
     Dosage: SLIDING SCALE
     Route: 058
     Dates: start: 201510
  9. GILENYA [Concomitant]
     Active Substance: FINGOLIMOD HYDROCHLORIDE
     Indication: MULTIPLE SCLEROSIS
     Dosage: 0.5 MG DAILY
     Route: 048
     Dates: start: 2011
  10. GABAPENTIN. [Concomitant]
     Active Substance: GABAPENTIN
     Indication: BACK DISORDER
     Dosage: 300 MG, 3X/DAY (TID) (1 IN AM, 1 IN THE AFTERNOON AND 2 AT NIGHT)
     Route: 048
     Dates: start: 2000
  11. ROTIGOTINE [Suspect]
     Active Substance: ROTIGOTINE
     Dosage: DOSE INCREASED (8 MG)
  12. TERBINAFINE HCL [Concomitant]
     Active Substance: TERBINAFINE HYDROCHLORIDE
     Indication: PRODUCT USED FOR UNKNOWN INDICATION
     Dosage: UNK
  13. ALDACTONE [Concomitant]
     Active Substance: SPIRONOLACTONE
     Indication: BLOOD PRESSURE MEASUREMENT
     Dosage: 50 MG DAILY
     Route: 048

REACTIONS (3)
  - Upper gastrointestinal haemorrhage [Recovering/Resolving]
  - Pemphigoid [Recovering/Resolving]
  - Diabetes mellitus [Not Recovered/Not Resolved]

NARRATIVE: CASE EVENT DATE: 2015
